FAERS Safety Report 8333429-X (Version None)
Quarter: 2012Q1

REPORT INFORMATION
  Report Type: 
  Country: None (occurrence: None)
  Receive Date: 20120327
  Receipt Date: 20110404
  Transmission Date: 20120608
  Serious: Yes (Other)
  Sender: FDA-Public Use
  Company Number: PHHY2011US28196

PATIENT
  Sex: Female

DRUGS (5)
  1. GLEEVEC [Suspect]
  2. ELAVIL [Concomitant]
  3. ZOFRAN [Concomitant]
  4. ELAVIL [Concomitant]
  5. XANAX [Suspect]
     Dosage: 1 MG, Q6H

REACTIONS (3)
  - MIGRAINE [None]
  - WEIGHT DECREASED [None]
  - TREMOR [None]
